FAERS Safety Report 12252314 (Version 1)
Quarter: 2016Q2

REPORT INFORMATION
  Report Type: Spontaneous
  Country: IR (occurrence: IR)
  Receive Date: 20160411
  Receipt Date: 20160411
  Transmission Date: 20160815
  Serious: Yes (Hospitalization, Other)
  Sender: FDA-Public Use
  Company Number: IR-PAR PHARMACEUTICAL COMPANIES-2016SCPR015329

PATIENT

DRUGS (1)
  1. TRAMADOL ER [Suspect]
     Active Substance: TRAMADOL HYDROCHLORIDE
     Indication: PREMATURE EJACULATION
     Dosage: 1 DF, SINGLE
     Route: 048
     Dates: start: 201507

REACTIONS (4)
  - Rhabdomyolysis [Recovered/Resolved]
  - Serotonin syndrome [Recovered/Resolved]
  - Renal impairment [Recovered/Resolved]
  - Product use issue [Unknown]

NARRATIVE: CASE EVENT DATE: 201507
